APPROVED DRUG PRODUCT: ACTIFED
Active Ingredient: PSEUDOEPHEDRINE HYDROCHLORIDE; TRIPROLIDINE HYDROCHLORIDE
Strength: 120MG;5MG
Dosage Form/Route: CAPSULE, EXTENDED RELEASE;ORAL
Application: N018996 | Product #001
Applicant: GLAXOSMITHKLINE
Approved: Jun 17, 1985 | RLD: No | RS: No | Type: DISCN